FAERS Safety Report 21043396 (Version 1)
Quarter: 2022Q3

REPORT INFORMATION
  Report Type: Spontaneous
  Country: PL (occurrence: PL)
  Receive Date: 20220705
  Receipt Date: 20220705
  Transmission Date: 20221026
  Serious: Yes (Death, Other)
  Sender: FDA-Public Use
  Company Number: PL-PFIZER INC-PV202200014950

PATIENT
  Age: 43 Year
  Sex: Male

DRUGS (1)
  1. BESPONSA [Suspect]
     Active Substance: INOTUZUMAB OZOGAMICIN
     Dosage: UNK, CYCLIC (TWO CYCLES)
     Dates: start: 202203

REACTIONS (3)
  - Death [Fatal]
  - Thrombocytopenia [Unknown]
  - Infection [Unknown]

NARRATIVE: CASE EVENT DATE: 20220601
